FAERS Safety Report 17117183 (Version 2)
Quarter: 2019Q4

REPORT INFORMATION
  Report Type: Spontaneous
  Country: IT (occurrence: IT)
  Receive Date: 20191205
  Receipt Date: 20191211
  Transmission Date: 20200122
  Serious: Yes (Hospitalization)
  Sender: FDA-Public Use
  Company Number: IT-STRIDES ARCOLAB LIMITED-2019SP012234

PATIENT
  Age: 25 Year
  Sex: Male

DRUGS (2)
  1. ALBENDAZOLE. [Suspect]
     Active Substance: ALBENDAZOLE
     Indication: FILARIASIS
     Dosage: 200 MILLIGRAM, BID
     Route: 065
  2. DIETHYLCARBAMAZINE [Concomitant]
     Active Substance: DIETHYLCARBAMAZINE
     Indication: FILARIASIS
     Dosage: UNK
     Route: 065

REACTIONS (20)
  - Somnolence [Recovered/Resolved]
  - Hypertonia [Recovered/Resolved]
  - Dizziness [Recovered/Resolved]
  - Off label use [Unknown]
  - Hyporesponsive to stimuli [Recovered/Resolved]
  - Disturbance in attention [Recovered/Resolved]
  - Eye movement disorder [Recovered/Resolved]
  - General physical health deterioration [Recovered/Resolved]
  - Abnormal behaviour [Recovered/Resolved]
  - Fatigue [Recovered/Resolved]
  - Toxic encephalopathy [Recovered/Resolved]
  - Dyskinesia [Recovered/Resolved]
  - Hyperreflexia [Recovered/Resolved]
  - Myoclonus [Recovered/Resolved]
  - Catatonia [Recovered/Resolved]
  - Facial paralysis [Recovered/Resolved]
  - Extensor plantar response [Recovered/Resolved]
  - Automatism [Recovered/Resolved]
  - Headache [Recovered/Resolved]
  - Visual impairment [Recovered/Resolved]
